FAERS Safety Report 19270540 (Version 1)
Quarter: 2021Q2

REPORT INFORMATION
  Report Type: Report from Study
  Country: US (occurrence: US)
  Receive Date: 20210518
  Receipt Date: 20210518
  Transmission Date: 20210717
  Serious: Yes (Other)
  Sender: FDA-Public Use
  Company Number: US-GILEAD-2021-0519544

PATIENT
  Age: 27 Year
  Sex: Male

DRUGS (7)
  1. VITAMIN D [VITAMIN D NOS] [Concomitant]
     Active Substance: VITAMIN D NOS
  2. AZTREONAM LYSINE [Suspect]
     Active Substance: AZTREONAM LYSINE
     Indication: CYSTIC FIBROSIS
     Dosage: 75 MG, TID, FOR 28 DAYS ON THEN 28 DAYS OFF
     Route: 055
  3. TRIKAFTA [Concomitant]
     Active Substance: ELEXACAFTOR\IVACAFTOR\TEZACAFTOR
     Dosage: UNK
  4. ALBUTEROL SULFATE. [Concomitant]
     Active Substance: ALBUTEROL SULFATE
  5. PULMOZYME [Concomitant]
     Active Substance: DORNASE ALFA
  6. HYPERSAL [Concomitant]
     Active Substance: SODIUM CHLORIDE
  7. TOBI PODHALER [Concomitant]
     Active Substance: TOBRAMYCIN

REACTIONS (1)
  - Haemorrhage [Unknown]
